FAERS Safety Report 6426125-7 (Version None)
Quarter: 2009Q4

REPORT INFORMATION
  Report Type: 
  Country: None (occurrence: None)
  Receive Date: 20091104
  Receipt Date: 20091028
  Transmission Date: 20100525
  Serious: Yes (Other)
  Sender: FDA-Public Use
  Company Number: US-MEDIMMUNE-MEDI-0009262

PATIENT
  Sex: Female

DRUGS (6)
  1. SYNAGIS [Suspect]
     Dates: start: 20091027, end: 20091027
  2. XOPENEX [Concomitant]
     Indication: BRONCHITIS
     Dates: start: 20091006
  3. MYLICON [Concomitant]
  4. ZYRTEC [Concomitant]
     Route: 048
  5. PRILOSEC [Concomitant]
  6. POLY-VI-SOL [Concomitant]
     Route: 048

REACTIONS (1)
  - PARTIAL SEIZURES [None]
